FAERS Safety Report 6489072-0 (Version None)
Quarter: 2009Q4

REPORT INFORMATION
  Report Type: 
  Country: None (occurrence: None)
  Receive Date: 20091123
  Receipt Date: 20091008
  Transmission Date: 20100525
  Serious: No
  Sender: FDA-Public Use
  Company Number: 8053115

PATIENT
  Age: 60 Year
  Sex: Male
  Weight: 100 kg

DRUGS (6)
  1. CIMZIA [Suspect]
     Indication: CROHN'S DISEASE
     Dosage: 400 MG /M SC
     Route: 058
     Dates: start: 20081106
  2. LOPRESSOR [Concomitant]
  3. SINGULAIR [Concomitant]
  4. NEXIUM [Suspect]
  5. EFFEXOR [Concomitant]
  6. TIZANIDINE HCL [Concomitant]

REACTIONS (1)
  - RASH [None]
